FAERS Safety Report 24923954 (Version 3)
Quarter: 2025Q1

REPORT INFORMATION
  Report Type: Report from Study
  Country: CO (occurrence: CO)
  Receive Date: 20250204
  Receipt Date: 20250331
  Transmission Date: 20250409
  Serious: Yes (Hospitalization, Other)
  Sender: NOVARTIS
  Company Number: CO-002147023-NVSC2024CO221968

PATIENT
  Sex: Female
  Weight: 80 kg

DRUGS (9)
  1. KISQALI [Suspect]
     Active Substance: RIBOCICLIB
     Indication: Hormone receptor positive HER2 negative breast cancer
     Dosage: 600 MG/ / 3 OF 200 MG, QD
     Route: 048
     Dates: start: 20240722
  2. KISQALI [Suspect]
     Active Substance: RIBOCICLIB
     Route: 048
  3. KISQALI [Suspect]
     Active Substance: RIBOCICLIB
     Route: 048
  4. KISQALI [Suspect]
     Active Substance: RIBOCICLIB
     Dosage: 400 MG, QD
     Route: 048
     Dates: start: 202407
  5. KISQALI [Suspect]
     Active Substance: RIBOCICLIB
     Dosage: 400 MG, QD
     Route: 048
     Dates: start: 202408
  6. FEMARA [Suspect]
     Active Substance: LETROZOLE
     Indication: Hormone receptor positive HER2 negative breast cancer
     Dosage: 2.5 MG, QD
     Route: 048
     Dates: start: 20240722
  7. FEMARA [Suspect]
     Active Substance: LETROZOLE
     Route: 065
  8. DICLOFENAC SODIUM\TRAMADOL HYDROCHLORIDE [Suspect]
     Active Substance: DICLOFENAC SODIUM\TRAMADOL HYDROCHLORIDE
     Indication: Arthralgia
     Route: 065
     Dates: start: 20250120
  9. Biocalcium d [Concomitant]
     Indication: Bone disorder
     Dosage: 1 DOSAGE FORM, QD
     Route: 065

REACTIONS (21)
  - Pain in extremity [Recovered/Resolved]
  - Metastases to bone [Unknown]
  - Metastases to spine [Unknown]
  - Metastasis [Unknown]
  - Vomiting [Recovered/Resolved]
  - Syncope [Recovered/Resolved]
  - Liver function test increased [Unknown]
  - Dizziness [Recovered/Resolved]
  - Malignant neoplasm progression [Unknown]
  - Hormone receptor positive HER2 negative breast cancer [Unknown]
  - Laboratory test abnormal [Unknown]
  - Anxiety [Recovering/Resolving]
  - Insomnia [Recovered/Resolved]
  - Pyrexia [Recovered/Resolved]
  - Bone lesion [Unknown]
  - Chest scan abnormal [Unknown]
  - Therapeutic product effect incomplete [Unknown]
  - Arthralgia [Unknown]
  - Pain in extremity [Unknown]
  - Bone pain [Unknown]
  - Gait disturbance [Unknown]
